FAERS Safety Report 5775323-4 (Version None)
Quarter: 2008Q2

REPORT INFORMATION
  Report Type: 
  Country: None (occurrence: None)
  Receive Date: 20080616
  Receipt Date: 20080616
  Transmission Date: 20081010
  Serious: Yes (Life-Threatening)
  Sender: FDA-Public Use
  Company Number: None

PATIENT
  Sex: Female
  Weight: 72.5755 kg

DRUGS (9)
  1. SINGULAIR [Suspect]
     Indication: MULTIPLE ALLERGIES
     Dosage: 1 TABLET DAY PO
     Route: 048
     Dates: start: 20060404, end: 20080331
  2. ASACOL [Concomitant]
  3. DICYCLOMINE [Concomitant]
  4. PREVACID [Concomitant]
  5. VITAMIN B-12 [Concomitant]
  6. CALCIUM WITH K [Concomitant]
  7. MATURE MULTIVITAMIN WITH CALCIUM [Concomitant]
  8. FISH OIL [Concomitant]
  9. ASCORBIC ACID [Concomitant]

REACTIONS (4)
  - DEPRESSION [None]
  - HYPOAESTHESIA [None]
  - SELF-INJURIOUS IDEATION [None]
  - SUICIDAL IDEATION [None]
